FAERS Safety Report 25596725 (Version 1)
Quarter: 2025Q3

REPORT INFORMATION
  Report Type: Spontaneous
  Country: US (occurrence: US)
  Receive Date: 20250723
  Receipt Date: 20250723
  Transmission Date: 20251020
  Serious: Yes (Death, Life-Threatening, Hospitalization)
  Sender: GALPHARM INTERNATIONAL
  Company Number: US-MLMSERVICE-20250710-PI574175-00204-1

PATIENT
  Sex: Female

DRUGS (1)
  1. LOPERAMIDE HYDROCHLORIDE [Suspect]
     Active Substance: LOPERAMIDE HYDROCHLORIDE
     Indication: Back pain
     Route: 048

REACTIONS (9)
  - Ventricular arrhythmia [Fatal]
  - Ventricular fibrillation [Fatal]
  - Cardiac arrest [Fatal]
  - Metabolic acidosis [Fatal]
  - Electrocardiogram QT prolonged [Fatal]
  - Ventricular tachycardia [Fatal]
  - Anoxia [Fatal]
  - Brain injury [Fatal]
  - Intentional product misuse [Fatal]
